FAERS Safety Report 4657371-0 (Version None)
Quarter: 2005Q2

REPORT INFORMATION
  Report Type: 
  Country: None (occurrence: None)
  Receive Date: 20050405
  Receipt Date: 20040523
  Transmission Date: 20051028
  Serious: Yes (Other)
  Sender: FDA-Public Use
  Company Number: 2004034907

PATIENT
  Age: 34 Year
  Sex: Male

DRUGS (3)
  1. GEODON [Suspect]
     Indication: ILL-DEFINED DISORDER
  2. QUETIAPINE FUMARATE [Suspect]
     Indication: ILL-DEFINED DISORDER
  3. VALSARTAN [Suspect]
     Indication: ILL-DEFINED DISORDER

REACTIONS (2)
  - CONVULSION [None]
  - VISION BLURRED [None]
